FAERS Safety Report 25548156 (Version 2)
Quarter: 2025Q3

REPORT INFORMATION
  Report Type: Spontaneous
  Country: EU (occurrence: EU)
  Receive Date: 20250714
  Receipt Date: 20250730
  Transmission Date: 20251020
  Serious: Yes (Life-Threatening)
  Sender: ALEXION PHARMACEUTICALS
  Company Number: EU-AstraZeneca-CH-00904805A

PATIENT
  Age: 73 Year
  Sex: Female

DRUGS (1)
  1. CALQUENCE [Suspect]
     Active Substance: ACALABRUTINIB
     Indication: Chronic lymphocytic leukaemia
     Dosage: 100 MILLIGRAM, Q12H
     Dates: start: 202311

REACTIONS (3)
  - Thrombocytopenia [Recovered/Resolved]
  - Focal peritonitis [Recovered/Resolved]
  - Acute cholecystitis necrotic [Recovered/Resolved]
